FAERS Safety Report 4431812-6 (Version None)
Quarter: 2004Q3

REPORT INFORMATION
  Report Type: 
  Country: None (occurrence: None)
  Receive Date: 20040818
  Receipt Date: 20040803
  Transmission Date: 20050211
  Serious: Yes (Hospitalization)
  Sender: FDA-Public Use
  Company Number: USA040874559

PATIENT
  Age: 17 Year
  Sex: Male

DRUGS (5)
  1. PROZAC [Suspect]
     Indication: BIPOLAR DISORDER
     Dates: start: 20020101
  2. LITHIUM [Concomitant]
  3. ZOLOFT [Concomitant]
  4. WELLBUTRIN [Concomitant]
  5. PAXIL [Concomitant]

REACTIONS (5)
  - ALCOHOLISM [None]
  - DEPRESSION [None]
  - DRUG ABUSER [None]
  - DRUG DEPENDENCE [None]
  - DRUG INEFFECTIVE [None]
